FAERS Safety Report 7528035-0 (Version None)
Quarter: 2011Q2

REPORT INFORMATION
  Report Type: 
  Country: None (occurrence: None)
  Receive Date: 20110531
  Receipt Date: 20110503
  Transmission Date: 20111010
  Serious: Yes (Hospitalization)
  Sender: FDA-Public Use
  Company Number: 2011MA004895

PATIENT
  Age: 72 Year
  Sex: Male

DRUGS (2)
  1. LINEZOLID [Concomitant]
  2. MIRTAZAPINE [Suspect]
     Indication: AFFECTIVE DISORDER
     Dosage: 30 MG; QD

REACTIONS (6)
  - SEROTONIN SYNDROME [None]
  - CONFUSIONAL STATE [None]
  - CLONUS [None]
  - SINUS TACHYCARDIA [None]
  - MYOCLONUS [None]
  - INSOMNIA [None]
